FAERS Safety Report 17137335 (Version 1)
Quarter: 2019Q4

REPORT INFORMATION
  Report Type: Spontaneous
  Country: US (occurrence: US)
  Receive Date: 20191119
  Receipt Date: 20191119
  Transmission Date: 20200122
  Serious: Yes (Hospitalization)
  Sender: FDA-Public Use
  Company Number: None

PATIENT
  Age: 68 Year
  Sex: Male
  Weight: 66 kg

DRUGS (1)
  1. NAPROXEN. [Suspect]
     Active Substance: NAPROXEN
     Route: 048
     Dates: start: 20160209, end: 20190202

REACTIONS (6)
  - Gastrointestinal haemorrhage [None]
  - Oesophagitis [None]
  - Gastric cancer [None]
  - Duodenitis [None]
  - Purulent discharge [None]
  - Gastric ulcer [None]

NARRATIVE: CASE EVENT DATE: 20190214
